FAERS Safety Report 5997607-7 (Version None)
Quarter: 2008Q4

REPORT INFORMATION
  Report Type: 
  Country: None (occurrence: None)
  Receive Date: 20081212
  Receipt Date: 20081204
  Transmission Date: 20090506
  Serious: Yes (Hospitalization, Other)
  Sender: FDA-Public Use
  Company Number: US-PFIZER INC-2008048134

PATIENT
  Sex: Female
  Weight: 68.04 kg

DRUGS (13)
  1. BLINDED *PLACEBO [Suspect]
     Indication: OSTEOARTHRITIS
     Route: 048
     Dates: start: 20071128, end: 20080501
  2. CELECOXIB [Suspect]
     Indication: OSTEOARTHRITIS
     Route: 048
     Dates: start: 20071128, end: 20080501
  3. BLINDED IBUPROFEN [Suspect]
     Indication: OSTEOARTHRITIS
     Route: 048
     Dates: start: 20071128, end: 20080501
  4. BLINDED NAPROXEN [Suspect]
     Indication: OSTEOARTHRITIS
     Route: 048
     Dates: start: 20071128, end: 20080501
  5. IRBESARTAN [Concomitant]
     Dosage: QD
     Route: 048
     Dates: start: 20051117
  6. AMLODIPINE [Concomitant]
     Dosage: QD
     Route: 048
     Dates: start: 20051117
  7. PAROXETINE HCL [Concomitant]
     Dosage: QD
     Route: 048
     Dates: start: 20051117
  8. LEVOTHYROXINE SODIUM [Concomitant]
     Dosage: QD
     Route: 048
     Dates: start: 20051117
  9. SIMVASTATIN [Concomitant]
     Dosage: QD
     Route: 048
     Dates: start: 20051117
  10. CONJUGATED ESTROGENS [Concomitant]
     Dosage: 0.625 MG, 1X/DAY
     Route: 048
     Dates: start: 20061101
  11. KEFLEX [Concomitant]
     Dosage: QD
     Route: 048
     Dates: start: 20080602, end: 20080604
  12. LORTAB [Concomitant]
     Dosage: 7.5/500 MG,PRN
     Route: 048
     Dates: start: 20080602
  13. ESOMEPRAZOLE [Concomitant]
     Dosage: 20 MG, 1X/DAY
     Route: 048
     Dates: start: 20071128, end: 20080601

REACTIONS (2)
  - DRUG HYPERSENSITIVITY [None]
  - FOLLICLE CENTRE LYMPHOMA, FOLLICULAR GRADE I, II, III [None]
